FAERS Safety Report 9862340 (Version 1)
Quarter: 2014Q1

REPORT INFORMATION
  Report Type: Spontaneous
  Country: US (occurrence: US)
  Receive Date: 20140203
  Receipt Date: 20140203
  Transmission Date: 20141002
  Serious: No
  Sender: FDA-Public Use
  Company Number: US-BAYER-2014-016385

PATIENT
  Age: 49 Year
  Sex: Female

DRUGS (1)
  1. GADAVIST [Suspect]
     Indication: BREAST SCAN
     Dosage: 1 ML/S, ONCE
     Dates: start: 20140121, end: 20140121

REACTIONS (1)
  - Nausea [Recovered/Resolved]
